FAERS Safety Report 18703026 (Version 1)
Quarter: 2021Q1

REPORT INFORMATION
  Report Type: Spontaneous
  Country: IT (occurrence: IT)
  Receive Date: 20210105
  Receipt Date: 20210105
  Transmission Date: 20210419
  Serious: Yes (Hospitalization)
  Sender: FDA-Public Use
  Company Number: IT-ASTRAZENECA-2020SF75121

PATIENT
  Age: 55 Year
  Sex: Male

DRUGS (4)
  1. EFEXOR [Suspect]
     Active Substance: VENLAFAXINE HYDROCHLORIDE
     Dosage: 150.0MG ONCE/SINGLE ADMINISTRATION
     Route: 048
     Dates: start: 20201217, end: 20201217
  2. LARGACTIL [Suspect]
     Active Substance: CHLORPROMAZINE
     Dosage: 100.0MG ONCE/SINGLE ADMINISTRATION
     Route: 048
     Dates: start: 20201217, end: 20201217
  3. QUETIAPINE FUMARATE. [Suspect]
     Active Substance: QUETIAPINE FUMARATE
     Dosage: 400.0MG ONCE/SINGLE ADMINISTRATION
     Route: 048
     Dates: start: 20201217, end: 20201217
  4. HALCION [Suspect]
     Active Substance: TRIAZOLAM
     Dosage: 250.0UG/INHAL ONCE/SINGLE ADMINISTRATION
     Route: 048
     Dates: start: 20201217, end: 20201217

REACTIONS (2)
  - Sopor [Recovering/Resolving]
  - Product prescribing error [Recovering/Resolving]

NARRATIVE: CASE EVENT DATE: 20201217
